FAERS Safety Report 25196312 (Version 1)
Quarter: 2025Q2

REPORT INFORMATION
  Report Type: Spontaneous
  Country: PR (occurrence: PR)
  Receive Date: 20250415
  Receipt Date: 20250415
  Transmission Date: 20250716
  Serious: No
  Sender: MERCK SHARP AND DOHME
  Company Number: PR-009507513-2269891

PATIENT
  Age: 63 Year
  Sex: Female
  Weight: 53.07 kg

DRUGS (2)
  1. KEYTRUDA [Suspect]
     Active Substance: PEMBROLIZUMAB
     Indication: Neoplasm malignant
  2. LENVIMA [Suspect]
     Active Substance: LENVATINIB
     Indication: Neoplasm
     Dosage: 20 MG DAILY
     Dates: start: 20250115

REACTIONS (1)
  - Vaginal discharge [Not Recovered/Not Resolved]

NARRATIVE: CASE EVENT DATE: 20250101
